FAERS Safety Report 7587443-2 (Version None)
Quarter: 2011Q3

REPORT INFORMATION
  Report Type: 
  Country: None (occurrence: None)
  Receive Date: 20110704
  Receipt Date: 20110621
  Transmission Date: 20111222
  Serious: No
  Sender: FDA-Public Use
  Company Number: US-BIOGENIDEC-2011BI023060

PATIENT
  Age: 54 Year
  Sex: Female

DRUGS (4)
  1. AVONEX [Suspect]
     Indication: MULTIPLE SCLEROSIS
     Route: 030
     Dates: start: 19890101, end: 19890101
  2. TYLENOL-500 [Concomitant]
     Indication: PREMEDICATION
  3. AVONEX [Suspect]
     Route: 030
     Dates: start: 20110619
  4. IBUPROFEN [Concomitant]
     Indication: PREMEDICATION

REACTIONS (6)
  - PALPITATIONS [None]
  - HEART RATE INCREASED [None]
  - FEELING COLD [None]
  - TREMOR [None]
  - FEELING HOT [None]
  - INFLUENZA LIKE ILLNESS [None]
